FAERS Safety Report 24224588 (Version 1)
Quarter: 2024Q3

REPORT INFORMATION
  Report Type: Spontaneous
  Country: CN (occurrence: CN)
  Receive Date: 20240819
  Receipt Date: 20240819
  Transmission Date: 20241017
  Serious: Yes (Hospitalization, Other)
  Sender: DAIICHI
  Company Number: CN-DSJP-DSJ-2024-140669

PATIENT
  Age: 56 Year
  Sex: Male
  Weight: 60 kg

DRUGS (2)
  1. ENHERTU [Suspect]
     Active Substance: FAM-TRASTUZUMAB DERUXTECAN-NXKI
     Indication: Neoplasm
     Dosage: 100 MG, ONCE EVERY 3 WK
     Route: 041
     Dates: start: 20240723, end: 20240804
  2. DEXTROSE [Concomitant]
     Active Substance: DEXTROSE\DEXTROSE MONOHYDRATE
     Indication: Vehicle solution use
     Dosage: 100 ML, ONCE EVERY 3 WK
     Route: 041
     Dates: start: 20240723, end: 20240723

REACTIONS (4)
  - Myelosuppression [Recovered/Resolved]
  - Laryngeal pain [Unknown]
  - Productive cough [Unknown]
  - Hyperpyrexia [Recovered/Resolved]

NARRATIVE: CASE EVENT DATE: 20240804
